FAERS Safety Report 7151451-6 (Version None)
Quarter: 2010Q4

REPORT INFORMATION
  Report Type: 
  Country: None (occurrence: None)
  Receive Date: 20101123
  Receipt Date: 20101115
  Transmission Date: 20110411
  Serious: Yes (Other)
  Sender: FDA-Public Use
  Company Number: DE-1184089

PATIENT
  Age: 58 Year
  Sex: Female

DRUGS (2)
  1. TRAVATAN [Suspect]
     Indication: OPEN ANGLE GLAUCOMA
     Dosage: 1 GTT QD, OPHTHALMIC
     Route: 047
     Dates: start: 20090301
  2. BETA BLOCKING AGENTS (BETA BLOCKING AGENTS) [Concomitant]

REACTIONS (1)
  - HALLUCINATION, VISUAL [None]
